FAERS Safety Report 24065022 (Version 1)
Quarter: 2024Q3

REPORT INFORMATION
  Report Type: Spontaneous
  Country: US (occurrence: None)
  Receive Date: 20240708
  Receipt Date: 20240708
  Transmission Date: 20241016
  Serious: No
  Sender: Public
  Company Number: None

PATIENT
  Sex: Male

DRUGS (1)
  1. VTAMA [Suspect]
     Active Substance: TAPINAROF
     Indication: Psoriasis
     Dosage: TWICE A DAY TOPICAL?
     Route: 061

REACTIONS (2)
  - Migraine [None]
  - Vomiting [None]
